FAERS Safety Report 9913559 (Version 1)
Quarter: 2014Q1

REPORT INFORMATION
  Report Type: Spontaneous
  Country: US (occurrence: None)
  Receive Date: 20140218
  Receipt Date: 20140218
  Transmission Date: 20141002
  Serious: Yes (Hospitalization)
  Sender: FDA-Public Use
  Company Number: None

PATIENT
  Age: 57 Year
  Sex: Male
  Weight: 112.4 kg

DRUGS (1)
  1. ASPIRIN [Suspect]
     Indication: THROMBOSIS PROPHYLAXIS
     Route: 048
     Dates: start: 20131120, end: 20140117

REACTIONS (6)
  - Gastric haemorrhage [None]
  - Hypotension [None]
  - Mental status changes [None]
  - Gastric ulcer [None]
  - Duodenal ulcer haemorrhage [None]
  - Anaemia [None]
